FAERS Safety Report 8826942 (Version 1)
Quarter: 2012Q4

REPORT INFORMATION
  Report Type: 
  Country: US (occurrence: US)
  Receive Date: 20121005
  Receipt Date: 20121005
  Transmission Date: 20130627
  Serious: No
  Sender: FDA-Public Use
  Company Number: US-PFIZER INC-2012243186

PATIENT
  Age: 84 Year
  Sex: Female
  Weight: 81.63 kg

DRUGS (1)
  1. DETROL LA [Suspect]
     Indication: NOCTURIA
     Dosage: 4 mg, 1x/day
     Route: 048
     Dates: start: 201207

REACTIONS (1)
  - Drug effect incomplete [Unknown]
